FAERS Safety Report 4820571-0 (Version None)
Quarter: 2005Q4

REPORT INFORMATION
  Report Type: 
  Country: None (occurrence: None)
  Receive Date: 20051104
  Receipt Date: 20050808
  Transmission Date: 20060501
  Serious: Yes (Death, Disabling, Other)
  Sender: FDA-Public Use
  Company Number: 2005GB01532

PATIENT
  Age: 40 Year
  Weight: 140 kg

DRUGS (8)
  1. QUETIAPINE FUMARATE [Suspect]
     Indication: PSYCHOTIC DISORDER
     Route: 048
     Dates: start: 20031202
  2. WARFARIN SODIUM [Concomitant]
     Indication: PROPHYLAXIS
     Dosage: PER INR
     Route: 065
  3. WARFARIN SODIUM [Concomitant]
     Indication: DEEP VEIN THROMBOSIS
     Dosage: PER INR
     Route: 065
  4. CO-AMILOFRUSE [Concomitant]
     Indication: OEDEMA
     Route: 048
     Dates: start: 20050621
  5. DIAZEPAM [Concomitant]
     Indication: DRUG ABUSER
     Route: 048
     Dates: start: 20040401
  6. DIAZEPAM [Concomitant]
     Indication: MENTAL DISORDER
     Route: 048
     Dates: start: 20040401
  7. FRUSEMIDE [Concomitant]
     Indication: OEDEMA
     Route: 048
     Dates: start: 20030621
  8. PROCYCLIDINE HYDROCHLORIDE 2MG TAB [Concomitant]
     Route: 048
     Dates: start: 20040220

REACTIONS (4)
  - BRONCHOPNEUMONIA [None]
  - MOBILITY DECREASED [None]
  - OBESITY [None]
  - WEIGHT INCREASED [None]
